FAERS Safety Report 11220457 (Version 1)
Quarter: 2015Q2

REPORT INFORMATION
  Report Type: Report from Study
  Country: MX (occurrence: MX)
  Receive Date: 20150625
  Receipt Date: 20150625
  Transmission Date: 20150821
  Serious: Yes (Disabling)
  Sender: FDA-Public Use
  Company Number: MX-ROCHE-1392631

PATIENT
  Age: 59 Year
  Sex: Female
  Weight: 63.5 kg

DRUGS (8)
  1. FOLINIC ACID [Concomitant]
     Active Substance: LEUCOVORIN
     Indication: PROPHYLAXIS
     Dosage: FROM MONDAY TO FRIDAY
     Route: 048
     Dates: start: 2005
  2. MABTHERA [Suspect]
     Active Substance: RITUXIMAB
     Dosage: DATE OF MOST RECENT INFUSION: 03/MAR/2015
     Route: 042
     Dates: start: 20150217
  3. LEDERTREXATE [Concomitant]
     Active Substance: METHOTREXATE
     Dosage: ON SATURDAYS
     Route: 048
     Dates: start: 2005, end: 201202
  4. ARCOXIA [Concomitant]
     Active Substance: ETORICOXIB
     Indication: RHEUMATOID ARTHRITIS
  5. PLAQUENIL [Concomitant]
     Active Substance: HYDROXYCHLOROQUINE SULFATE
     Indication: RHEUMATOID ARTHRITIS
  6. LYRICA [Concomitant]
     Active Substance: PREGABALIN
     Indication: RHEUMATOID ARTHRITIS
  7. MABTHERA [Suspect]
     Active Substance: RITUXIMAB
     Indication: RHEUMATOID ARTHRITIS
     Route: 042
     Dates: start: 201202
  8. LEDERTREXATE [Concomitant]
     Active Substance: METHOTREXATE
     Indication: RHEUMATOID ARTHRITIS
     Dosage: ON SATURDAYS
     Route: 048
     Dates: start: 201202

REACTIONS (12)
  - Arthralgia [Not Recovered/Not Resolved]
  - Body temperature increased [Recovered/Resolved]
  - Arthralgia [Recovered/Resolved]
  - Pain [Not Recovered/Not Resolved]
  - Nasopharyngitis [Recovered/Resolved]
  - Walking disability [Not Recovered/Not Resolved]
  - Sneezing [Recovered/Resolved]
  - Pyrexia [Recovered/Resolved]
  - Myalgia [Recovered/Resolved]
  - Spinal pain [Recovered/Resolved]
  - Chills [Recovered/Resolved]
  - Spinal disorder [Not Recovered/Not Resolved]

NARRATIVE: CASE EVENT DATE: 201202
